FAERS Safety Report 5315665-X (Version None)
Quarter: 2007Q2

REPORT INFORMATION
  Report Type: 
  Country: None (occurrence: None)
  Receive Date: 20070503
  Receipt Date: 20070427
  Transmission Date: 20071010
  Serious: Yes (Disabling)
  Sender: FDA-Public Use
  Company Number: JP-GILEAD-2007-0011972

PATIENT
  Sex: Male

DRUGS (1)
  1. HEPSERA [Suspect]
     Indication: PATHOGEN RESISTANCE
     Route: 048
     Dates: start: 20061012

REACTIONS (1)
  - DEMYELINATION [None]
